FAERS Safety Report 15280153 (Version 1)
Quarter: 2018Q3

REPORT INFORMATION
  Report Type: Spontaneous
  Country: US (occurrence: US)
  Receive Date: 20180815
  Receipt Date: 20180815
  Transmission Date: 20181010
  Serious: No
  Sender: FDA-Public Use
  Company Number: US-SA-2018SA175807

PATIENT
  Age: 60 Year
  Sex: Female

DRUGS (1)
  1. CAPZASIN QUICK RELIEF GEL [Suspect]
     Active Substance: CAPSAICIN

REACTIONS (1)
  - Burning sensation [Unknown]

NARRATIVE: CASE EVENT DATE: 20180622
